FAERS Safety Report 7626660-X (Version None)
Quarter: 2011Q3

REPORT INFORMATION
  Report Type: 
  Country: None (occurrence: None)
  Receive Date: 20110721
  Receipt Date: 20110607
  Transmission Date: 20111222
  Serious: No
  Sender: FDA-Public Use
  Company Number: US-NOVEN-11US002576

PATIENT
  Sex: Male

DRUGS (1)
  1. FENTANYL [Suspect]
     Indication: PAIN
     Dosage: 75 UG, 2 PATCHES Q 48 HOURS
     Route: 062
     Dates: start: 20110605

REACTIONS (5)
  - APPLICATION SITE SWELLING [None]
  - APPLICATION SITE ERYTHEMA [None]
  - DRUG ADMINISTRATION ERROR [None]
  - APPLICATION SITE PAIN [None]
  - PRODUCT QUALITY ISSUE [None]
